FAERS Safety Report 9516305 (Version 1)
Quarter: 2013Q3

REPORT INFORMATION
  Report Type: Spontaneous
  Country: US (occurrence: None)
  Receive Date: 20130830
  Receipt Date: 20130830
  Transmission Date: 20140515
  Serious: Yes (Hospitalization)
  Sender: FDA-Public Use
  Company Number: 2013-1217

PATIENT
  Age: 55 Year
  Sex: Male

DRUGS (18)
  1. KYPROLIS [Suspect]
     Indication: PLASMA CELL MYELOMA
     Dates: start: 20130422, end: 20130520
  2. ACYCLOVIR (ACICLOVIR) (ACICLOVIR) [Concomitant]
  3. CARVEDILOL (CARVEDILOL) (CARVEDILOL) [Concomitant]
  4. DALTEPARIN (DALTEPARIN) (DALTEPARIN) [Concomitant]
  5. GERNAVINOL (DIMENHYDRINATE) (DIMENHYDRINATE) [Concomitant]
  6. ERGOCALCIFEROL (ERGOCALCIFEROL) (ERGOCALCIFEROL) [Concomitant]
  7. VICODIN (PARACETAMOL, HYDROCODONE BITARTRATE) (PARACETAMOL, HYDROCODONE BITARTRATE) [Concomitant]
  8. INSULIN REGULAR (INSULIN BOVINE) (INSULIN BOVINE) [Concomitant]
  9. INSULIN NPH (INSULIN ISOPHANE BOVINE) (INSULINE ISOPHANE BOVINE) [Concomitant]
  10. LISINOPRIL (LISINOPRIL) (LISINOPRIL) [Concomitant]
  11. LORATADINE (LORATADINE) (LORATADINE) [Concomitant]
  12. MAGENESIUM SUPPLEMENT (MAGNESIUM HYDROXIDE, ALUMINIUM HYDROXIDE) (MAGNESIUM HYDROXIDE, ALUMINIUM HYDROXIDE) [Concomitant]
  13. METOPROLOL (METOPROLOL) (METOPROLOL) [Concomitant]
  14. MORPHINE SULFATE EXTENDED RELEASE (MORPHINE SULFATE) (MORPHINE SULFATE) [Concomitant]
  15. NORTRIPTYLINE (NORTHRIPTYLINE) (NORTRIPTYLINE) [Concomitant]
  16. OMEPRAZOLE (OMEPRAZOLE) (OMEPRAZOLE) [Concomitant]
  17. DOCUSATE (DOCUSATE) (DOCUSATE) [Concomitant]
  18. PSYLLIUM (PLANTAGO AFRA) (PLATAGO AFRA) [Concomitant]

REACTIONS (2)
  - Ejection fraction decreased [None]
  - Atrial fibrillation [None]
